FAERS Safety Report 13712880 (Version 1)
Quarter: 2017Q3

REPORT INFORMATION
  Report Type: Spontaneous
  Country: US (occurrence: US)
  Receive Date: 20170703
  Receipt Date: 20170703
  Transmission Date: 20171127
  Serious: Yes (Other)
  Sender: FDA-Public Use
  Company Number: US-AMGEN-USASP2017098271

PATIENT
  Sex: Female

DRUGS (3)
  1. ENBREL [Suspect]
     Active Substance: ETANERCEPT
     Indication: PRODUCT USED FOR UNKNOWN INDICATION
     Dosage: UNK
     Route: 065
  2. XELJANZ [Concomitant]
     Active Substance: TOFACITINIB CITRATE
     Dosage: 5 MG, BID
     Route: 065
  3. MTX [Concomitant]
     Active Substance: METHOTREXATE SODIUM
     Dosage: UNK
     Route: 048

REACTIONS (23)
  - Arthralgia [Unknown]
  - Cardiac operation [Unknown]
  - Pain [Unknown]
  - Anxiety [Unknown]
  - Movement disorder [Unknown]
  - Depressed mood [Unknown]
  - Diarrhoea [Unknown]
  - Hyperaesthesia [Unknown]
  - Cystitis [Unknown]
  - Asthenia [Not Recovered/Not Resolved]
  - Grip strength decreased [Unknown]
  - Dyslexia [Unknown]
  - Synovitis [Unknown]
  - Urticaria [Unknown]
  - Epistaxis [Unknown]
  - Depression [Unknown]
  - Joint swelling [Unknown]
  - Urinary tract infection [Unknown]
  - Cerebrovascular accident [Unknown]
  - Drug ineffective [Unknown]
  - Unevaluable event [Not Recovered/Not Resolved]
  - Fatigue [Unknown]
  - Insomnia [Unknown]
